FAERS Safety Report 12036898 (Version 1)
Quarter: 2016Q1

REPORT INFORMATION
  Report Type: Report from Study
  Country: BR (occurrence: BR)
  Receive Date: 20160208
  Receipt Date: 20160208
  Transmission Date: 20160526
  Serious: Yes (Other)
  Sender: FDA-Public Use
  Company Number: BR-ROCHE-1185158

PATIENT
  Age: 74 Year
  Sex: Female
  Weight: 43.9 kg

DRUGS (2)
  1. MELOXICAM. [Concomitant]
     Active Substance: MELOXICAM
  2. ACTEMRA [Suspect]
     Active Substance: TOCILIZUMAB
     Indication: RHEUMATOID ARTHRITIS
     Dosage: 200 MG/10ML, MONTHLY, MOST RECENT DOSE: 26/JAN/2016
     Route: 042
     Dates: start: 20110505

REACTIONS (5)
  - Gait disturbance [Not Recovered/Not Resolved]
  - Therapeutic response decreased [Unknown]
  - Drug dose omission [Unknown]
  - Deafness [Not Recovered/Not Resolved]
  - Peripheral swelling [Recovered/Resolved]

NARRATIVE: CASE EVENT DATE: 201110
